FAERS Safety Report 4392937-7 (Version None)
Quarter: 2004Q3

REPORT INFORMATION
  Report Type: 
  Country: None (occurrence: None)
  Receive Date: 20040702
  Receipt Date: 20040623
  Transmission Date: 20050211
  Serious: Yes (Hospitalization, Other)
  Sender: FDA-Public Use
  Company Number: 2004-06-0421

PATIENT
  Age: 31 Year
  Sex: Female
  Weight: 45 kg

DRUGS (6)
  1. CLARITIN [Suspect]
     Indication: PRURITUS
     Dosage: 10MG QOD ORAL; 10 MG ORAL
     Route: 048
     Dates: start: 20031108, end: 20040315
  2. CLARITIN [Suspect]
     Indication: PRURITUS
     Dosage: 10MG QOD ORAL; 10 MG ORAL
     Route: 048
     Dates: start: 20031108
  3. CLARITIN [Suspect]
     Indication: PRURITUS
     Dosage: 10MG QOD ORAL; 10 MG ORAL
     Route: 048
     Dates: start: 20040604
  4. ALMETA (ALCLOMETASONE DIPROPIONATE) OINTMENT [Concomitant]
  5. PANDEL CREAM [Concomitant]
  6. ... [Concomitant]

REACTIONS (5)
  - ABORTION SPONTANEOUS [None]
  - DRUG EXPOSURE DURING PREGNANCY [None]
  - FOETAL CARDIAC DISORDER [None]
  - FOETAL GROWTH RETARDATION [None]
  - PREGNANCY [None]
